FAERS Safety Report 7259974-6 (Version None)
Quarter: 2011Q1

REPORT INFORMATION
  Report Type: 
  Country: None (occurrence: None)
  Receive Date: 20110130
  Receipt Date: 20101018
  Transmission Date: 20110831
  Serious: No
  Sender: FDA-Public Use
  Company Number: US-ABBOTT-10P-163-0679057-00

PATIENT
  Sex: Female
  Weight: 98.972 kg

DRUGS (10)
  1. HUMIRA [Suspect]
     Indication: RHEUMATOID ARTHRITIS
     Dates: start: 20091001
  2. OMEPRAZOLE [Concomitant]
     Indication: BARRETT'S OESOPHAGUS
  3. VITAMIN D [Concomitant]
     Indication: SUPPLEMENTATION THERAPY
  4. ALBUTEROL [Concomitant]
     Indication: ASTHMA
     Dosage: NEBULIZER
     Route: 055
  5. FOLIC ACID [Concomitant]
     Indication: SUPPLEMENTATION THERAPY
  6. PROZAC [Concomitant]
     Indication: DEPRESSION
  7. CELEBREX [Concomitant]
     Indication: RHEUMATOID ARTHRITIS
  8. METHOTREXATE [Concomitant]
     Indication: RHEUMATOID ARTHRITIS
     Dosage: 0.6 MILLILITER
     Route: 050
  9. PROAIR HFA [Concomitant]
     Indication: ASTHMA
     Route: 055
  10. ALPRAZOLAM [Concomitant]
     Indication: ANXIETY

REACTIONS (7)
  - INJECTION SITE PAIN [None]
  - NAUSEA [None]
  - CHEST PAIN [None]
  - WEIGHT INCREASED [None]
  - BRONCHITIS [None]
  - CHEST DISCOMFORT [None]
  - COUGH [None]
